FAERS Safety Report 16986276 (Version 3)
Quarter: 2020Q1

REPORT INFORMATION
  Report Type: Spontaneous
  Country: US (occurrence: US)
  Receive Date: 20191101
  Receipt Date: 20200116
  Transmission Date: 20200409
  Serious: Yes (Other)
  Sender: FDA-Public Use
  Company Number: US-BAUSCH-BL-2019-059639

PATIENT

DRUGS (2)
  1. PLENVU [Suspect]
     Active Substance: ASCORBIC ACID\POLYETHYLENE GLYCOL 3350\POTASSIUM CHLORIDE\SODIUM ASCORBATE\SODIUM CHLORIDE\SODIUM SULFATE
     Dosage: 5 DAYS AGO (REPORTED WITH THE FOLLOW-UP REPORT ON 10/JAN/2019)
     Route: 065
  2. PLENVU [Suspect]
     Active Substance: ASCORBIC ACID\POLYETHYLENE GLYCOL 3350\POTASSIUM CHLORIDE\SODIUM ASCORBATE\SODIUM CHLORIDE\SODIUM SULFATE
     Indication: BOWEL PREPARATION
     Dosage: FIRST DOSE AT 6 PM AND SECOND DOSE AT 9 PM
     Route: 065

REACTIONS (10)
  - Malaise [Unknown]
  - Product use complaint [Unknown]
  - Constipation [Unknown]
  - Abdominal distension [Unknown]
  - Product taste abnormal [Unknown]
  - Feeling abnormal [Unknown]
  - Abdominal discomfort [Unknown]
  - Hypertension [Not Recovered/Not Resolved]
  - Insomnia [Unknown]
  - Nausea [Unknown]
